FAERS Safety Report 9669224 (Version 3)
Quarter: 2014Q1

REPORT INFORMATION
  Report Type: Spontaneous
  Country: FR (occurrence: None)
  Receive Date: 20131101
  Receipt Date: 20140305
  Transmission Date: 20141002
  Serious: Yes (Hospitalization)
  Sender: FDA-Public Use
  Company Number: 2013-003404

PATIENT
  Age: 69 Year
  Sex: Male

DRUGS (2)
  1. ACTONEL (RISEDRONATE SODIUM) TABLET, 35MG [Suspect]
     Indication: OSTEOPOROSIS
     Dosage: ONCE WEEKLY
     Route: 048
     Dates: start: 2009
  2. ESIDREX [Suspect]
     Indication: HYPERTENSION
     Route: 048
     Dates: start: 2009, end: 20131009

REACTIONS (3)
  - Pancreatitis acute [None]
  - Necrosis [None]
  - Biliary cyst [None]
